FAERS Safety Report 4526890-X (Version None)
Quarter: 2004Q4

REPORT INFORMATION
  Report Type: 
  Country: None (occurrence: None)
  Receive Date: 20041105
  Receipt Date: 20040917
  Transmission Date: 20050328
  Serious: No
  Sender: FDA-Public Use
  Company Number: 2004USFACT00029

PATIENT
  Age: 20 Year
  Sex: Female
  Weight: 93.4 kg

DRUGS (2)
  1. FACTIVE [Suspect]
     Dosage: 320.00 MG QD ORAL
     Route: 048
     Dates: start: 20040915, end: 20040917
  2. DEPO-PROVERA SUSPENSION/INJ [Concomitant]

REACTIONS (1)
  - RASH MACULAR [None]
